FAERS Safety Report 24689896 (Version 1)
Quarter: 2024Q4

REPORT INFORMATION
  Report Type: Spontaneous
  Country: FR (occurrence: FR)
  Receive Date: 20241203
  Receipt Date: 20241203
  Transmission Date: 20250115
  Serious: Yes (Other)
  Sender: AUROBINDO
  Company Number: FR-MYLANLABS-2024M1102445

PATIENT
  Age: 75 Year
  Sex: Female
  Weight: 44 kg

DRUGS (2)
  1. AMOXICILLIN [Suspect]
     Active Substance: AMOXICILLIN
     Indication: Synovial cyst
     Dosage: 3 GRAM, ONCE A DAY (1 GRAM, TID ( 1G 3/DAY (3G)))
     Route: 048
     Dates: start: 20240914, end: 20240918
  2. AMOXICILLIN [Suspect]
     Active Substance: AMOXICILLIN
     Dosage: 3 GRAM, ONCE A DAY (1 GRAM, TID ( 1G 3/DAY (3G)))
     Route: 048
     Dates: start: 20240914, end: 20240918

REACTIONS (4)
  - Delirium febrile [Recovered/Resolved]
  - Dyspnoea [Not Recovered/Not Resolved]
  - Pyrexia [Recovered/Resolved]
  - Oropharyngeal pain [Recovered/Resolved]

NARRATIVE: CASE EVENT DATE: 20240901
